FAERS Safety Report 9682516 (Version 2)
Quarter: 2013Q4

REPORT INFORMATION
  Report Type: Spontaneous
  Country: JP (occurrence: JP)
  Receive Date: 20131112
  Receipt Date: 20131120
  Transmission Date: 20140711
  Serious: Yes (Other)
  Sender: FDA-Public Use
  Company Number: JP-BRISTOL-MYERS SQUIBB COMPANY-19799089

PATIENT
  Age: 71 Year
  Sex: Female

DRUGS (4)
  1. ERBITUX SOLN FOR INF 5MG/ML [Suspect]
     Indication: COLORECTAL CANCER
     Route: 041
     Dates: start: 20130912
  2. IRINOTECAN [Suspect]
     Indication: COLORECTAL CANCER
     Route: 041
     Dates: start: 20130912
  3. DECADRON [Concomitant]
     Indication: PREMEDICATION
  4. GRANISETRON [Concomitant]
     Indication: PREMEDICATION

REACTIONS (1)
  - Genital haemorrhage [Unknown]
